FAERS Safety Report 12784458 (Version 1)
Quarter: 2016Q3

REPORT INFORMATION
  Report Type: Spontaneous
  Country: IN (occurrence: IN)
  Receive Date: 20160927
  Receipt Date: 20160927
  Transmission Date: 20161109
  Serious: Yes (Death, Hospitalization)
  Sender: FDA-Public Use
  Company Number: IN-SA-2016SA175419

PATIENT
  Age: 2 Month
  Sex: Female

DRUGS (1)
  1. CEFOTAXIME SODIUM [Suspect]
     Active Substance: CEFOTAXIME SODIUM
     Dosage: 3 DVIDED DOSES
     Route: 065

REACTIONS (14)
  - Petechiae [Fatal]
  - Seizure [Fatal]
  - Multi-organ disorder [Fatal]
  - Puncture site haemorrhage [Fatal]
  - Lung infiltration [Fatal]
  - White blood cell count increased [Fatal]
  - Purulence [Fatal]
  - X-ray abnormal [Fatal]
  - C-reactive protein increased [Fatal]
  - Generalised oedema [Fatal]
  - Hyponatraemia [Fatal]
  - Pneumonia [Fatal]
  - Stenotrophomonas infection [Fatal]
  - Hypotension [Fatal]
